FAERS Safety Report 6734055-6 (Version None)
Quarter: 2010Q2

REPORT INFORMATION
  Report Type: 
  Country: None (occurrence: None)
  Receive Date: 20100520
  Receipt Date: 20100514
  Transmission Date: 20101027
  Serious: Yes (Hospitalization)
  Sender: FDA-Public Use
  Company Number: US-PERRIGO-10US009693

PATIENT
  Sex: Female
  Weight: 68.027 kg

DRUGS (4)
  1. HEMORRHOIDAL OINT 400 [Suspect]
     Indication: HAEMORRHOIDS
     Dosage: 1 APPLICATOR ONCE AT BEDTIME
     Route: 054
     Dates: start: 20100505, end: 20100505
  2. ANTIHYPERTENSIVES [Concomitant]
     Indication: HYPERTENSION
     Dosage: UNK
     Route: 048
  3. UNSPECIFIED CHOLESTEROL MEDICATION [Concomitant]
     Indication: BLOOD CHOLESTEROL INCREASED
     Dosage: UNK
     Route: 048
  4. UNSPECIFIED ANXIETY MEDICATION [Concomitant]
     Indication: ANXIETY
     Dosage: UNK
     Route: 048

REACTIONS (7)
  - BLOOD GLUCOSE DECREASED [None]
  - CONDITION AGGRAVATED [None]
  - DIARRHOEA [None]
  - DIZZINESS [None]
  - HEART RATE DECREASED [None]
  - NAUSEA [None]
  - RENAL FAILURE ACUTE [None]
